FAERS Safety Report 5630791-3 (Version None)
Quarter: 2008Q1

REPORT INFORMATION
  Report Type: 
  Country: None (occurrence: None)
  Receive Date: 20080219
  Receipt Date: 20080214
  Transmission Date: 20080703
  Serious: Yes (Hospitalization, Other)
  Sender: FDA-Public Use
  Company Number: US-BRISTOL-MYERS SQUIBB COMPANY-14053235

PATIENT
  Age: 52 Year
  Sex: Female

DRUGS (3)
  1. IXEMPRA [Suspect]
     Indication: BREAST CANCER METASTATIC
     Route: 042
     Dates: start: 20080115, end: 20080115
  2. BENADRYL [Concomitant]
     Route: 042
  3. TAGAMET [Concomitant]
     Route: 042

REACTIONS (9)
  - ALANINE AMINOTRANSFERASE INCREASED [None]
  - ASPARTATE AMINOTRANSFERASE INCREASED [None]
  - BLOOD BILIRUBIN INCREASED [None]
  - DEHYDRATION [None]
  - DYSURIA [None]
  - LOCALISED OEDEMA [None]
  - PANCYTOPENIA [None]
  - RASH PRURITIC [None]
  - STOMATITIS [None]
